FAERS Safety Report 8478208-8 (Version None)
Quarter: 2012Q2

REPORT INFORMATION
  Report Type: 
  Country: None (occurrence: None)
  Receive Date: 20120629
  Receipt Date: 20120618
  Transmission Date: 20120825
  Serious: Yes (Hospitalization, Other)
  Sender: FDA-Public Use
  Company Number: US-ELI_LILLY_AND_COMPANY-US201203005529

PATIENT
  Sex: Female

DRUGS (16)
  1. SPIRIVA [Concomitant]
     Dosage: UNK
  2. HYDROCODONE BITARTRATE [Concomitant]
     Indication: PAIN
     Dosage: UNK
  3. ADVAIR DISKUS 100/50 [Concomitant]
     Dosage: UNK
  4. FORTEO [Suspect]
     Dosage: 20 UG, QD
     Dates: start: 20120308
  5. LOVAZA [Concomitant]
     Dosage: 1000 MG, QD
  6. VITAMIN D [Concomitant]
     Dosage: UNK
  7. BENEFIBER [Concomitant]
  8. FIBER [Concomitant]
     Dosage: UNK
  9. METOPROLOL SUCCINATE [Concomitant]
     Dosage: UNK
  10. FORTEO [Suspect]
     Indication: OSTEOPOROSIS
     Dosage: 20 UG, QD
     Dates: start: 20120308
  11. ASCORBIC ACID [Concomitant]
     Dosage: UNK
  12. VITAMIN E [Concomitant]
     Dosage: UNK
  13. LISINOPRIL [Concomitant]
     Dosage: UNK
  14. ZOLPIDEM [Concomitant]
     Dosage: UNK
  15. PREMARIN [Concomitant]
     Dosage: UNK
  16. ASPIRIN [Concomitant]
     Dosage: 81 MG, UNK

REACTIONS (12)
  - ASTHENIA [None]
  - VOMITING [None]
  - NAUSEA [None]
  - FEMUR FRACTURE [None]
  - CONTUSION [None]
  - MEDICAL DEVICE COMPLICATION [None]
  - DIZZINESS [None]
  - LOWER LIMB FRACTURE [None]
  - BLOOD CALCIUM INCREASED [None]
  - PAIN [None]
  - HEART RATE INCREASED [None]
  - MYALGIA [None]
